FAERS Safety Report 10076799 (Version 1)
Quarter: 2014Q2

REPORT INFORMATION
  Report Type: Spontaneous
  Country: GB (occurrence: GB)
  Receive Date: 20140414
  Receipt Date: 20140414
  Transmission Date: 20141212
  Serious: Yes (Death)
  Sender: FDA-Public Use
  Company Number: GB-WATSON-2014-06989

PATIENT
  Sex: 0

DRUGS (8)
  1. CARBOPLATIN (UNKNOWN) [Suspect]
     Indication: PRODUCT USED FOR UNKNOWN INDICATION
     Dosage: 500 MG, UNKNOWN
     Route: 065
     Dates: start: 20140312
  2. ETOPOSIDE (UNKNOWN) [Suspect]
     Indication: PRODUCT USED FOR UNKNOWN INDICATION
     Dosage: 140 MG, UNKNOWN
     Route: 065
     Dates: start: 20140314
  3. ETOPOSIDE (UNKNOWN) [Suspect]
     Dosage: 140 MG, UNKNOWN
     Route: 065
     Dates: start: 20140313
  4. ETOPOSIDE (UNKNOWN) [Suspect]
     Dosage: 140 MG, UNKNOWN
     Route: 065
     Dates: start: 20140312
  5. GLUCOSE [Suspect]
     Indication: MEDICATION DILUTION
     Dosage: 500 ML, UNKNOWN
     Route: 065
     Dates: start: 20140312
  6. SODIUM CHLORIDE [Suspect]
     Indication: MEDICATION DILUTION
     Dosage: 1000 ML, UNKNOWN
     Route: 065
     Dates: start: 20140314
  7. SODIUM CHLORIDE [Suspect]
     Dosage: 1000 ML, UNKNOWN
     Route: 065
     Dates: start: 20140313
  8. SODIUM CHLORIDE [Suspect]
     Dosage: 1000 ML, UNKNOWN
     Route: 065
     Dates: start: 20140312

REACTIONS (1)
  - Death [Fatal]
